FAERS Safety Report 17381566 (Version 1)
Quarter: 2020Q1

REPORT INFORMATION
  Report Type: Spontaneous
  Country: US (occurrence: US)
  Receive Date: 20200206
  Receipt Date: 20200206
  Transmission Date: 20200409
  Serious: No
  Sender: FDA-Public Use
  Company Number: None

PATIENT
  Sex: Male
  Weight: 130.5 kg

DRUGS (4)
  1. HUMALOG KWIKPEN [Concomitant]
     Active Substance: INSULIN LISPRO
  2. XTANDI [Suspect]
     Active Substance: ENZALUTAMIDE
     Indication: PROSTATE CANCER
     Route: 048
     Dates: start: 20191202, end: 20200121
  3. FAMOTIDINE. [Concomitant]
     Active Substance: FAMOTIDINE
  4. TRESIBA [Concomitant]
     Active Substance: INSULIN DEGLUDEC

REACTIONS (2)
  - Disease progression [None]
  - Prostatic specific antigen increased [None]
